FAERS Safety Report 7080501-0 (Version None)
Quarter: 2010Q4

REPORT INFORMATION
  Report Type: 
  Country: None (occurrence: None)
  Receive Date: 20101025
  Receipt Date: 20101008
  Transmission Date: 20110411
  Serious: Yes (Other)
  Sender: FDA-Public Use
  Company Number: 2010-01006

PATIENT
  Age: 47 Year
  Sex: Male
  Weight: 99.7913 kg

DRUGS (9)
  1. SIMVASTATIN [Suspect]
     Indication: HYPERLIPIDAEMIA
     Dosage: 20 MG (20 MG, 1 IN 1 D), PER ORAL
     Route: 048
     Dates: start: 20091001, end: 20100501
  2. CLONAZEPAM [Concomitant]
  3. CELEXA [Concomitant]
  4. RITALIN [Concomitant]
  5. PRAMIPEXOLE (TABLETS) [Concomitant]
  6. TIZANIDINE (TABLETS) [Concomitant]
  7. SUMATRIPTAN (CAPSULES) [Concomitant]
  8. FLONASE (INHALANT) [Concomitant]
  9. SYMBICORT [Concomitant]

REACTIONS (1)
  - FIBROMYALGIA [None]
